FAERS Safety Report 8133689-4 (Version None)
Quarter: 2012Q1

REPORT INFORMATION
  Report Type: 
  Country: None (occurrence: None)
  Receive Date: 20120213
  Receipt Date: 20120209
  Transmission Date: 20120608
  Serious: Yes (Hospitalization, Other)
  Sender: FDA-Public Use
  Company Number: PHEH2012US003470

PATIENT
  Sex: Male

DRUGS (8)
  1. OXYBUTYNIN [Concomitant]
     Dosage: 5 MG, UNK
  2. AMANTADINE HCL [Concomitant]
     Dosage: 100 MG, UNK
  3. ASCORBIC ACID [Concomitant]
     Dosage: 100 MG, UNK
  4. LYRICA [Concomitant]
     Dosage: 100 MG, UNK
  5. VITAMIN D [Concomitant]
     Dosage: 400 U, UNK
  6. BACLOFEN [Concomitant]
     Dosage: 20 MG, UNK
  7. GILENYA [Suspect]
     Dosage: 0.5 MG, QD
     Route: 048
  8. FISH OIL [Concomitant]

REACTIONS (1)
  - URINARY TRACT INFECTION [None]
